FAERS Safety Report 8761733 (Version 1)
Quarter: 2012Q4

REPORT INFORMATION
  Report Type: Spontaneous
  Country: US (occurrence: None)
  Receive Date: 20120830
  Receipt Date: 20120830
  Transmission Date: 20130627
  Serious: No
  Sender: FDA-Public Use
  Company Number: None

PATIENT
  Sex: Female

DRUGS (1)
  1. MONTELUKAST SODIUM [Suspect]
     Indication: ASTHMATIC ATTACK
     Dates: start: 20120820

REACTIONS (9)
  - Product substitution issue [None]
  - Drug ineffective [None]
  - Heart rate increased [None]
  - Dyspnoea [None]
  - Wheezing [None]
  - Cough [None]
  - Fatigue [None]
  - Gait disturbance [None]
  - Economic problem [None]
